FAERS Safety Report 16163816 (Version 3)
Quarter: 2019Q2

REPORT INFORMATION
  Report Type: Report from Study
  Country: US (occurrence: US)
  Receive Date: 20190405
  Receipt Date: 20190430
  Transmission Date: 20190711
  Serious: Yes (Death, Hospitalization)
  Sender: FDA-Public Use
  Company Number: US-EISAI MEDICAL RESEARCH-EC-2019-053758

PATIENT
  Age: 64 Year
  Sex: Male
  Weight: 109 kg

DRUGS (10)
  1. HUMALOG [Concomitant]
     Active Substance: INSULIN LISPRO
  2. NADOLOL. [Concomitant]
     Active Substance: NADOLOL
  3. TOUJEO [Concomitant]
     Active Substance: INSULIN GLARGINE
  4. LENVIMA [Suspect]
     Active Substance: LENVATINIB
     Route: 048
     Dates: start: 2019, end: 201904
  5. XIFAXAN [Concomitant]
     Active Substance: RIFAXIMIN
  6. LENVIMA [Suspect]
     Active Substance: LENVATINIB
     Indication: HEPATIC CANCER
     Route: 048
     Dates: start: 20190301, end: 2019
  7. VITAMIN D3 [Concomitant]
     Active Substance: CHOLECALCIFEROL
  8. MULTIPLE VITAMINS [Concomitant]
     Active Substance: VITAMINS
  9. IRON [Concomitant]
     Active Substance: IRON
  10. AVODART [Concomitant]
     Active Substance: DUTASTERIDE

REACTIONS (5)
  - Post procedural haemorrhage [Unknown]
  - Blood pressure increased [Unknown]
  - Death [Fatal]
  - Ammonia increased [Unknown]
  - Asthenia [Unknown]

NARRATIVE: CASE EVENT DATE: 2019
